FAERS Safety Report 15634887 (Version 1)
Quarter: 2018Q4

REPORT INFORMATION
  Report Type: Spontaneous
  Country: FR (occurrence: FR)
  Receive Date: 20181119
  Receipt Date: 20181119
  Transmission Date: 20190205
  Serious: Yes (Other)
  Sender: FDA-Public Use
  Company Number: FR-009507513-1811FRA003750

PATIENT
  Age: 31 Year
  Sex: Female

DRUGS (1)
  1. NEXPLANON [Suspect]
     Active Substance: ETONOGESTREL
     Indication: CONTRACEPTION
     Route: 058

REACTIONS (3)
  - Drug ineffective [Recovered/Resolved with Sequelae]
  - Abortion induced [Recovered/Resolved with Sequelae]
  - Pregnancy [Recovered/Resolved with Sequelae]

NARRATIVE: CASE EVENT DATE: 2018
